FAERS Safety Report 6459125-1 (Version None)
Quarter: 2009Q4

REPORT INFORMATION
  Report Type: 
  Country: None (occurrence: None)
  Receive Date: 20091127
  Receipt Date: 20091116
  Transmission Date: 20100525
  Serious: Yes (Hospitalization)
  Sender: FDA-Public Use
  Company Number: CL-PFIZER INC-2006129580

PATIENT
  Age: 62 Year
  Sex: Female
  Weight: 89 kg

DRUGS (3)
  1. SUNITINIB MALATE [Suspect]
     Indication: METASTATIC RENAL CELL CARCINOMA
     Dosage: 50 MG, 1X/DAY
     Route: 048
     Dates: start: 20060518
  2. NIFEDIPINE [Concomitant]
     Route: 048
     Dates: start: 20060920
  3. CEFOTAXIME [Concomitant]
     Dates: start: 20061022

REACTIONS (3)
  - ENTERITIS [None]
  - HEPATITIS [None]
  - THROMBOCYTOPENIA [None]
